FAERS Safety Report 24412063 (Version 1)
Quarter: 2024Q4

REPORT INFORMATION
  Report Type: Spontaneous
  Country: US (occurrence: None)
  Receive Date: 20241007
  Receipt Date: 20241007
  Transmission Date: 20250114
  Serious: No
  Sender: Public
  Company Number: None

PATIENT
  Age: 31 Year
  Sex: Female
  Weight: 175.5 kg

DRUGS (6)
  1. ZEPBOUND [Suspect]
     Active Substance: TIRZEPATIDE
     Indication: Weight decreased
     Dosage: FREQUENCY : WEEKLY;?
     Route: 058
     Dates: start: 20240713, end: 20240810
  2. ZEPBOUND [Suspect]
     Active Substance: TIRZEPATIDE
     Indication: Glucose tolerance impaired
  3. HAILEY FE 1/20 (birth control) [Concomitant]
  4. XIIDRA [Concomitant]
     Active Substance: LIFITEGRAST
  5. VITAMIN D [Concomitant]
     Active Substance: VITAMIN D NOS
  6. GERITOL [Concomitant]

REACTIONS (4)
  - Abdominal pain upper [None]
  - Diarrhoea [None]
  - Vomiting [None]
  - Hepatic enzyme increased [None]

NARRATIVE: CASE EVENT DATE: 20240812
